FAERS Safety Report 6257707-3 (Version None)
Quarter: 2009Q3

REPORT INFORMATION
  Report Type: 
  Country: None (occurrence: None)
  Receive Date: 20090702
  Receipt Date: 20090623
  Transmission Date: 20100115
  Serious: Yes (Life-Threatening, Hospitalization)
  Sender: FDA-Public Use
  Company Number: 2009AL004233

PATIENT
  Sex: Female

DRUGS (5)
  1. HYDROCORTISONE 2.5% CREAM [Suspect]
     Indication: CROHN'S DISEASE
     Dosage: 40 MG; IV
     Route: 042
     Dates: start: 20090421
  2. REMICADE [Concomitant]
  3. AMOXICILLIN [Concomitant]
  4. GENTAMICIN [Concomitant]
  5. ENOXAPARIN SODIUM [Concomitant]

REACTIONS (1)
  - REVERSIBLE POSTERIOR LEUKOENCEPHALOPATHY SYNDROME [None]
